FAERS Safety Report 14165157 (Version 2)
Quarter: 2017Q4

REPORT INFORMATION
  Report Type: Spontaneous
  Country: AT (occurrence: AT)
  Receive Date: 20171107
  Receipt Date: 20171113
  Transmission Date: 20180321
  Serious: Yes (Death)
  Sender: FDA-Public Use
  Company Number: AT-ROCHE-2013989

PATIENT
  Age: 73 Year
  Sex: Male
  Weight: 114 kg

DRUGS (2)
  1. ALECENSA [Suspect]
     Active Substance: ALECTINIB HYDROCHLORIDE
     Indication: BRONCHIAL NEOPLASM
     Route: 048
     Dates: start: 20171017, end: 20171023
  2. METFORMIN [Concomitant]
     Active Substance: METFORMIN HYDROCHLORIDE
     Indication: DIABETES MELLITUS
     Route: 048
     Dates: start: 20170926, end: 20171023

REACTIONS (5)
  - Pneumonitis [Fatal]
  - Oedema [Recovered/Resolved]
  - Dyspnoea [Unknown]
  - Inflammatory marker increased [Unknown]
  - Renal failure [Fatal]

NARRATIVE: CASE EVENT DATE: 20171023
